FAERS Safety Report 14094258 (Version 1)
Quarter: 2017Q4

REPORT INFORMATION
  Report Type: Spontaneous
  Country: US (occurrence: US)
  Receive Date: 20171016
  Receipt Date: 20171016
  Transmission Date: 20180321
  Serious: No
  Sender: FDA-Public Use
  Company Number: US-AMGEN-USASP2017030370

PATIENT
  Age: 67 Year
  Sex: Female
  Weight: 44.45 kg

DRUGS (3)
  1. PROLIA [Suspect]
     Active Substance: DENOSUMAB
     Indication: OSTEOPOROSIS POSTMENOPAUSAL
     Dosage: 60 MG, Q6MO
     Route: 065
     Dates: start: 20161111
  2. CALCIUM [Concomitant]
     Active Substance: CALCIUM
     Dosage: 1200 MG, QD
  3. VITAMIN D3 [Concomitant]
     Active Substance: CHOLECALCIFEROL
     Dosage: 1000 MG, QD

REACTIONS (6)
  - Limb discomfort [Unknown]
  - Nausea [Unknown]
  - Hypoaesthesia [Unknown]
  - Vitamin D deficiency [Recovered/Resolved]
  - Vitamin B12 deficiency [Recovered/Resolved]
  - Pain in extremity [Unknown]
